FAERS Safety Report 7272256-1 (Version None)
Quarter: 2011Q1

REPORT INFORMATION
  Report Type: 
  Country: None (occurrence: None)
  Receive Date: 20110203
  Receipt Date: 20110131
  Transmission Date: 20110831
  Serious: Yes (Hospitalization, Other)
  Sender: FDA-Public Use
  Company Number: BR-ABBOTT-11P-020-0701885-00

PATIENT
  Sex: Male
  Weight: 50 kg

DRUGS (5)
  1. HUMIRA [Suspect]
     Route: 058
  2. HUMIRA [Suspect]
     Indication: PSORIATIC ARTHROPATHY
     Dosage: 80 MG INDUCTION DOSE
     Route: 058
     Dates: start: 20101124, end: 20101124
  3. HALDOL [Concomitant]
     Indication: CONVULSION
     Route: 048
     Dates: start: 20101201
  4. HIDANTAL [Concomitant]
     Indication: CONVULSION
     Route: 048
     Dates: start: 20101201
  5. DIUPRESS [Concomitant]
     Indication: HYPERTENSION
     Route: 048
     Dates: start: 20101201

REACTIONS (8)
  - FALL [None]
  - LOCALISED INFECTION [None]
  - FEMUR FRACTURE [None]
  - THROMBOSIS [None]
  - WEIGHT DECREASED [None]
  - OSTEOMYELITIS [None]
  - LACERATION [None]
  - QUADRIPLEGIA [None]
